FAERS Safety Report 25978996 (Version 2)
Quarter: 2025Q4

REPORT INFORMATION
  Report Type: Spontaneous
  Country: US (occurrence: US)
  Receive Date: 20251030
  Receipt Date: 20251209
  Transmission Date: 20260117
  Serious: Yes (Other)
  Sender: MYLAN
  Company Number: US-MYLANLABS-2025M1091626

PATIENT
  Age: 56 Year
  Sex: Male

DRUGS (4)
  1. CITALOPRAM [Suspect]
     Active Substance: CITALOPRAM
     Indication: Depression
     Dosage: 30 MILLIGRAM, QD
     Dates: start: 2003, end: 202503
  2. CITALOPRAM [Suspect]
     Active Substance: CITALOPRAM
     Dosage: 30 MILLIGRAM, QD
     Route: 048
     Dates: start: 2003, end: 202503
  3. CITALOPRAM [Suspect]
     Active Substance: CITALOPRAM
     Dosage: 30 MILLIGRAM, QD
     Route: 048
     Dates: start: 2003, end: 202503
  4. CITALOPRAM [Suspect]
     Active Substance: CITALOPRAM
     Dosage: 30 MILLIGRAM, QD
     Dates: start: 2003, end: 202503

REACTIONS (4)
  - Withdrawal syndrome [Recovered/Resolved]
  - Vestibular migraine [Recovered/Resolved]
  - Intentional product misuse [Recovered/Resolved]
  - Treatment noncompliance [Recovered/Resolved]
